FAERS Safety Report 4453851-1 (Version None)
Quarter: 2004Q3

REPORT INFORMATION
  Report Type: 
  Country: None (occurrence: None)
  Receive Date: 20040920
  Receipt Date: 20040908
  Transmission Date: 20050211
  Serious: Yes (Congenital Anomaly, Other)
  Sender: FDA-Public Use
  Company Number: JP-MERCK-0409USA01126

PATIENT
  Sex: Female
  Weight: 1 kg

DRUGS (1)
  1. INDOCIN [Suspect]
     Indication: PREMATURE LABOUR

REACTIONS (4)
  - LARGE INTESTINE PERFORATION [None]
  - MECONIUM PERITONITIS [None]
  - PREMATURE BABY [None]
  - SMALL FOR DATES BABY [None]
